FAERS Safety Report 7182366-5 (Version None)
Quarter: 2010Q4

REPORT INFORMATION
  Report Type: 
  Country: None (occurrence: None)
  Receive Date: 20101221
  Receipt Date: 20101220
  Transmission Date: 20110411
  Serious: Yes (Hospitalization)
  Sender: FDA-Public Use
  Company Number: IT-BRISTOL-MYERS SQUIBB COMPANY-15450661

PATIENT
  Age: 61 Year
  Sex: Female

DRUGS (5)
  1. COUMADIN [Suspect]
     Indication: ARTERIAL THROMBOSIS
     Dates: start: 20090501, end: 20101127
  2. CALCIUM CARBONATE [Concomitant]
  3. CARDIOASPIRIN [Concomitant]
     Route: 048
  4. ESOMEPRAZOLE MAGNESIUM [Concomitant]
     Dosage: TABS.
     Route: 048
  5. LANTHANUM CARBONATE [Concomitant]

REACTIONS (1)
  - CALCIPHYLAXIS [None]
